FAERS Safety Report 16958348 (Version 4)
Quarter: 2020Q2

REPORT INFORMATION
  Report Type: Report from Study
  Country: US (occurrence: US)
  Receive Date: 20191024
  Receipt Date: 20200409
  Transmission Date: 20200713
  Serious: Yes (Other)
  Sender: FDA-Public Use
  Company Number: US-GLAXOSMITHKLINE-2019-TSO02138-US

PATIENT
  Age: 58 Year
  Sex: Female

DRUGS (7)
  1. NIRAPARIB [Suspect]
     Active Substance: NIRAPARIB
     Dosage: 300 MG, QD
     Route: 048
  2. NIRAPARIB [Suspect]
     Active Substance: NIRAPARIB
     Dosage: 300 MG DAILY BEFORE BED
     Route: 048
  3. OLANZAPINE. [Concomitant]
     Active Substance: OLANZAPINE
     Indication: PRODUCT USED FOR UNKNOWN INDICATION
     Dosage: UNK
  4. NIRAPARIB [Suspect]
     Active Substance: NIRAPARIB
     Indication: OVARIAN CANCER
     Dosage: 300 MG, QPM WITH OR WITHOUT FOOD
     Route: 048
     Dates: start: 20190604
  5. NIRAPARIB [Suspect]
     Active Substance: NIRAPARIB
     Dosage: UNK
  6. NIRAPARIB [Suspect]
     Active Substance: NIRAPARIB
     Dosage: 300 MG
     Dates: start: 20190607
  7. NAPROXEN. [Concomitant]
     Active Substance: NAPROXEN
     Indication: PRODUCT USED FOR UNKNOWN INDICATION
     Dosage: UNK

REACTIONS (16)
  - Carbohydrate antigen 125 increased [Recovering/Resolving]
  - Nausea [Not Recovered/Not Resolved]
  - Neuropathy peripheral [Recovering/Resolving]
  - Hypoaesthesia [Unknown]
  - Abdominal discomfort [Unknown]
  - Migraine [Unknown]
  - Paraesthesia [Unknown]
  - Initial insomnia [Unknown]
  - Alopecia [Unknown]
  - Musculoskeletal stiffness [Unknown]
  - Nervousness [Unknown]
  - Plantar fasciitis [Unknown]
  - Fatigue [Not Recovered/Not Resolved]
  - Retching [Unknown]
  - Gastrooesophageal reflux disease [Unknown]
  - Peripheral swelling [Unknown]

NARRATIVE: CASE EVENT DATE: 201906
